FAERS Safety Report 24117536 (Version 1)
Quarter: 2024Q3

REPORT INFORMATION
  Report Type: Report from Study
  Country: US (occurrence: US)
  Receive Date: 20240722
  Receipt Date: 20240722
  Transmission Date: 20241016
  Serious: Yes (Death, Other)
  Sender: SANOFI AVENTIS
  Company Number: US-SA-2024SA210651

PATIENT

DRUGS (2)
  1. DOCETAXEL [Suspect]
     Active Substance: DOCETAXEL\DOCETAXEL ANHYDROUS
     Indication: Neoplasm malignant
     Dosage: 75 MG/M2, Q3W
     Route: 042
  2. PEMIGATINIB [Suspect]
     Active Substance: PEMIGATINIB
     Indication: Neoplasm malignant
     Dosage: 13.5 MG, QD 21-DAY CYCLES (2 WEEKS ON/ 1 WEEK OFF)

REACTIONS (1)
  - Meningitis bacterial [Fatal]
